FAERS Safety Report 14600376 (Version 1)
Quarter: 2018Q1

REPORT INFORMATION
  Report Type: Report from Study
  Country: GB (occurrence: GB)
  Receive Date: 20180305
  Receipt Date: 20180305
  Transmission Date: 20180509
  Serious: Yes (Hospitalization)
  Sender: FDA-Public Use
  Company Number: GB-B.I. PHARMACEUTICALS,INC./RIDGEFIELD-2015-BI-05697II

PATIENT
  Age: 58 Year
  Sex: Female
  Weight: 59.1 kg

DRUGS (9)
  1. METOCLOPRAMIDE. [Concomitant]
     Active Substance: METOCLOPRAMIDE
     Indication: MALAISE
     Route: 048
     Dates: start: 20141118, end: 20141121
  2. METOCLOPRAMIDE. [Concomitant]
     Active Substance: METOCLOPRAMIDE
     Route: 048
     Dates: start: 20150112
  3. COCODAMOL [Concomitant]
     Active Substance: ACETAMINOPHEN\CODEINE PHOSPHATE
     Indication: PAIN IN EXTREMITY
     Dosage: TT X 4: 2 DOSAGE FORM X 4
     Route: 048
     Dates: start: 20141102
  4. CYCLOPHOSPHAMIDE. [Suspect]
     Active Substance: CYCLOPHOSPHAMIDE
     Indication: OVARIAN CANCER METASTATIC
     Route: 048
     Dates: end: 20150201
  5. CHLORAMPHENICOL [Concomitant]
     Active Substance: CHLORAMPHENICOL
     Indication: EYE INFECTION
     Dosage: FORMULATION: EYE OINTMENT; ROUTE: EYE DROPS; DOSE PER APPLICATION/DAILY DOSE: 3%
     Route: 050
     Dates: start: 20141229
  6. BIBF 1120 [Suspect]
     Active Substance: NINTEDANIB
     Indication: OVARIAN CANCER METASTATIC
     Route: 048
     Dates: start: 20141117, end: 20150201
  7. CYCLIZINE [Concomitant]
     Active Substance: CYCLIZINE
     Indication: MALAISE
     Route: 048
     Dates: start: 20141121
  8. LANSOPRAZOLE. [Concomitant]
     Active Substance: LANSOPRAZOLE
     Indication: DRUG THERAPY
     Route: 048
     Dates: start: 20141204
  9. CO-AMOXICLAV [Concomitant]
     Active Substance: AMOXICILLIN\CLAVULANIC ACID
     Indication: INFECTION
     Dosage: DOSE PER APPLICATION AND DAILY DOSE: 125MG/500 MG
     Route: 048
     Dates: start: 20141229

REACTIONS (5)
  - Pulmonary embolism [Not Recovered/Not Resolved]
  - Lung infection [Recovered/Resolved]
  - Dehydration [Recovered/Resolved]
  - Nausea [Not Recovered/Not Resolved]
  - Thrombocytopenia [Not Recovered/Not Resolved]

NARRATIVE: CASE EVENT DATE: 20150126
